FAERS Safety Report 11058877 (Version 1)
Quarter: 2015Q2

REPORT INFORMATION
  Report Type: Spontaneous
  Country: US (occurrence: None)
  Receive Date: 20150422
  Receipt Date: 20150422
  Transmission Date: 20150821
  Serious: Yes (Disabling)
  Sender: FDA-Public Use
  Company Number: None

PATIENT
  Age: 41 Year
  Sex: Female
  Weight: 62.6 kg

DRUGS (4)
  1. LEVAQUIN [Suspect]
     Active Substance: LEVOFLOXACIN
     Indication: PROPHYLAXIS
     Route: 048
     Dates: start: 20100217, end: 20100317
  2. ASPIRIN. [Concomitant]
     Active Substance: ASPIRIN
  3. CIPRO [Suspect]
     Active Substance: CIPROFLOXACIN HYDROCHLORIDE
     Indication: PROPHYLAXIS
     Route: 048
     Dates: start: 20091008, end: 20100210
  4. LEVOTHYROXINE [Concomitant]
     Active Substance: LEVOTHYROXINE

REACTIONS (7)
  - Pain in extremity [None]
  - Exercise tolerance decreased [None]
  - Arthralgia [None]
  - Activities of daily living impaired [None]
  - Tendon disorder [None]
  - Toxicity to various agents [None]
  - Impaired healing [None]

NARRATIVE: CASE EVENT DATE: 20100503
